FAERS Safety Report 4502885-7 (Version None)
Quarter: 2004Q4

REPORT INFORMATION
  Report Type: 
  Country: None (occurrence: None)
  Receive Date: 20041116
  Receipt Date: 20041116
  Transmission Date: 20050328
  Serious: Yes (Disabling)
  Sender: FDA-Public Use
  Company Number: None

PATIENT
  Sex: Female
  Weight: 66.2252 kg

DRUGS (2)
  1. STRATTERA [Suspect]
     Indication: ATTENTION DEFICIT/HYPERACTIVITY DISORDER
     Dosage: 25MG-40MG DAILY ORAL
     Route: 048
     Dates: start: 20040317, end: 20040605
  2. WELLBUTRIN [Concomitant]

REACTIONS (3)
  - CHOLESTASIS [None]
  - HEPATITIS ACUTE [None]
  - HEPATOTOXICITY [None]
